FAERS Safety Report 9301631 (Version 1)
Quarter: 2013Q2

REPORT INFORMATION
  Report Type: Spontaneous
  Country: GB (occurrence: GB)
  Receive Date: 20130521
  Receipt Date: 20130521
  Transmission Date: 20140414
  Serious: Yes (Other)
  Sender: FDA-Public Use
  Company Number: GB-MYLANLABS-2013S1010138

PATIENT
  Age: 24 Year
  Sex: 0
  Weight: 107 kg

DRUGS (1)
  1. RISPERIDONE [Suspect]
     Indication: PSYCHOMOTOR HYPERACTIVITY
     Route: 048
     Dates: start: 201210, end: 201304

REACTIONS (3)
  - Weight increased [Unknown]
  - Skin striae [Unknown]
  - Libido decreased [Unknown]
